FAERS Safety Report 9626132 (Version 1)
Quarter: 2013Q4

REPORT INFORMATION
  Report Type: Spontaneous
  Country: US (occurrence: None)
  Receive Date: 20131015
  Receipt Date: 20131015
  Transmission Date: 20140711
  Serious: No
  Sender: FDA-Public Use
  Company Number: None

PATIENT
  Age: 26 Year
  Sex: Female
  Weight: 62.6 kg

DRUGS (1)
  1. SERTRALINE 50MG CAMBER P [Suspect]
     Indication: ANXIETY
     Dosage: HALF A PILL FOR FIRST WEEK
     Route: 048
     Dates: start: 20130909, end: 20130926

REACTIONS (4)
  - Photophobia [None]
  - Eye pain [None]
  - Headache [None]
  - Migraine [None]
